FAERS Safety Report 13229268 (Version 1)
Quarter: 2017Q1

REPORT INFORMATION
  Report Type: Spontaneous
  Country: US (occurrence: US)
  Receive Date: 20170214
  Receipt Date: 20170214
  Transmission Date: 20170428
  Serious: No
  Sender: FDA-Public Use
  Company Number: US-ASTRAZENECA-2017SE13579

PATIENT
  Age: 76 Year
  Sex: Female

DRUGS (4)
  1. LETRIZOL [Concomitant]
     Indication: BREAST CANCER METASTATIC
     Dosage: 2.5MG UNKNOWN
     Route: 048
     Dates: start: 20160919
  2. FASLODEX [Suspect]
     Active Substance: FULVESTRANT
     Indication: BREAST CANCER METASTATIC
     Route: 030
  3. XGEVA [Concomitant]
     Active Substance: DENOSUMAB
     Indication: BREAST CANCER METASTATIC
     Route: 058
     Dates: start: 20160919
  4. IBRANCE [Suspect]
     Active Substance: PALBOCICLIB
     Dosage: 00MG EVERY EVENING, 3 WEEKS ON AND 1 WEEK
     Route: 048

REACTIONS (3)
  - Anxiety [Unknown]
  - Dyspnoea [Unknown]
  - Stress [Unknown]

NARRATIVE: CASE EVENT DATE: 20170125
